FAERS Safety Report 9755587 (Version 1)
Quarter: 2013Q4

REPORT INFORMATION
  Report Type: Spontaneous
  Country: US (occurrence: US)
  Receive Date: 20131213
  Receipt Date: 20131213
  Transmission Date: 20140711
  Serious: No
  Sender: FDA-Public Use
  Company Number: US-GLAXOSMITHKLINE-A1020792A

PATIENT
  Age: 41 Year
  Sex: Male

DRUGS (1)
  1. NICODERM CQ 21MG [Suspect]
     Indication: SMOKING CESSATION THERAPY
     Route: 062
     Dates: start: 20130415, end: 20130419

REACTIONS (1)
  - Hypersensitivity [Recovered/Resolved]
